FAERS Safety Report 20938454 (Version 1)
Quarter: 2022Q2

REPORT INFORMATION
  Report Type: Spontaneous
  Country: JP (occurrence: JP)
  Receive Date: 20220609
  Receipt Date: 20220609
  Transmission Date: 20220721
  Serious: Yes (Life-Threatening, Hospitalization, Other)
  Sender: FDA-Public Use
  Company Number: JP-PFM-2022-04851

PATIENT

DRUGS (5)
  1. PROPRANOLOL [Suspect]
     Active Substance: PROPRANOLOL HYDROCHLORIDE
     Indication: Long QT syndrome
     Dosage: 9 MG/DAY
     Route: 065
  2. PROPRANOLOL [Suspect]
     Active Substance: PROPRANOLOL HYDROCHLORIDE
     Indication: Off label use
  3. MEXILETINE [Suspect]
     Active Substance: MEXILETINE
     Indication: Long QT syndrome
     Dosage: 180 MG/DAY
     Route: 065
  4. CARVEDILOL [Suspect]
     Active Substance: CARVEDILOL
     Indication: Long QT syndrome
     Dosage: 50 MG/DAY
     Route: 065
  5. FLECAINIDE [Suspect]
     Active Substance: FLECAINIDE
     Indication: Long QT syndrome
     Dosage: 100 MG/DAY
     Route: 065

REACTIONS (3)
  - Ventricular fibrillation [Unknown]
  - Off label use [Unknown]
  - Product use in unapproved indication [Unknown]
